FAERS Safety Report 19778387 (Version 2)
Quarter: 2021Q4

REPORT INFORMATION
  Report Type: Spontaneous
  Country: MY (occurrence: MY)
  Receive Date: 20210902
  Receipt Date: 20211022
  Transmission Date: 20220303
  Serious: Yes (Other)
  Sender: FDA-Public Use
  Company Number: MY-002147023-NVSC2021MY195016

PATIENT
  Age: 46 Year
  Sex: Male

DRUGS (2)
  1. RANIBIZUMAB [Suspect]
     Active Substance: RANIBIZUMAB
     Indication: Diabetic retinal oedema
     Route: 050
  2. RANIBIZUMAB [Suspect]
     Active Substance: RANIBIZUMAB
     Dosage: MONTHLY INTRAVITREAL INJECTION X3, THEN TREAT + EXTEND REGIME
     Route: 050
     Dates: start: 20210906

REACTIONS (2)
  - Macular cyst [Unknown]
  - Visual acuity reduced [Recovering/Resolving]
